FAERS Safety Report 16458830 (Version 1)
Quarter: 2019Q2

REPORT INFORMATION
  Report Type: Spontaneous
  Country: US (occurrence: US)
  Receive Date: 20190620
  Receipt Date: 20190620
  Transmission Date: 20190711
  Serious: No
  Sender: FDA-Public Use
  Company Number: US-THERAPEUTICSMD-2019TMD00894

PATIENT
  Age: 62 Year
  Sex: Female
  Weight: 68.03 kg

DRUGS (4)
  1. PROBIOTIC [Concomitant]
     Active Substance: PROBIOTICS NOS
  2. IMVEXXY [Suspect]
     Active Substance: ESTRADIOL
     Indication: ATROPHIC VULVOVAGINITIS
     Dosage: 10 ?G, 1X/DAY BEFORE BED
     Route: 067
     Dates: start: 20190405, end: 20190428
  3. LOSARTAN. [Concomitant]
     Active Substance: LOSARTAN
  4. NITROFURANTOIN. [Concomitant]
     Active Substance: NITROFURANTOIN
     Dosage: UNK, 1X/DAY AT BEDTIME

REACTIONS (3)
  - Vulvovaginal mycotic infection [Recovered/Resolved]
  - Product dose omission [Recovered/Resolved]
  - Vulvovaginal pruritus [Recovered/Resolved]

NARRATIVE: CASE EVENT DATE: 201904
